FAERS Safety Report 5015860-3 (Version None)
Quarter: 2006Q2

REPORT INFORMATION
  Report Type: 
  Country: None (occurrence: None)
  Receive Date: 20060601
  Receipt Date: 20060523
  Transmission Date: 20061013
  Serious: Yes (Hospitalization)
  Sender: FDA-Public Use
  Company Number: AU-BRISTOL-MYERS SQUIBB COMPANY-13393483

PATIENT
  Age: 46 Year
  Sex: Male

DRUGS (3)
  1. SUSTIVA [Suspect]
     Route: 048
     Dates: start: 20060120, end: 20060120
  2. EMTRICITABINE [Concomitant]
     Dates: start: 20060120
  3. TENOFOVIR DISOPROXIL FUMARATE [Concomitant]
     Dates: start: 20060120

REACTIONS (5)
  - ANGIONEUROTIC OEDEMA [None]
  - DYSPNOEA [None]
  - PARAESTHESIA [None]
  - RASH [None]
  - SWELLING FACE [None]
